FAERS Safety Report 4864773-6 (Version None)
Quarter: 2005Q4

REPORT INFORMATION
  Report Type: 
  Country: None (occurrence: None)
  Receive Date: 20051201
  Receipt Date: 20050706
  Transmission Date: 20060501
  Serious: No
  Sender: FDA-Public Use
  Company Number: 2005PV000261

PATIENT
  Age: 60 Year
  Sex: Female
  Weight: 124.7392 kg

DRUGS (7)
  1. BYETTA [Suspect]
     Indication: DIABETES MELLITUS NON-INSULIN-DEPENDENT
     Dosage: 5 MCG; BID; SC
     Route: 058
     Dates: start: 20050702
  2. METFORMIN [Concomitant]
  3. GLUCOTROL [Concomitant]
  4. LOZOL [Concomitant]
  5. COREG [Concomitant]
  6. HYDROCHLOROTHIAZIDE [Concomitant]
  7. DIOVAN [Concomitant]

REACTIONS (8)
  - ACCIDENTAL NEEDLE STICK [None]
  - BLOOD GLUCOSE INCREASED [None]
  - DIARRHOEA [None]
  - HYPERSENSITIVITY [None]
  - NAUSEA [None]
  - OROPHARYNGEAL SWELLING [None]
  - RASH [None]
  - VOMITING [None]
